FAERS Safety Report 11317859 (Version 2)
Quarter: 2015Q3

REPORT INFORMATION
  Report Type: Spontaneous
  Country: US (occurrence: US)
  Receive Date: 20150728
  Receipt Date: 20150827
  Transmission Date: 20151125
  Serious: Yes (Hospitalization)
  Sender: FDA-Public Use
  Company Number: US-BAYER-2015-388906

PATIENT
  Age: 38 Year
  Sex: Female
  Weight: 54.42 kg

DRUGS (1)
  1. MIRENA [Suspect]
     Active Substance: LEVONORGESTREL
     Indication: CONTRACEPTION
     Dosage: 20 MCG/24HR, CONT
     Route: 015
     Dates: start: 20111222, end: 20140306

REACTIONS (6)
  - Injury [None]
  - Uterine perforation [None]
  - Pain [None]
  - Depression [None]
  - Emotional distress [None]
  - Off label use of device [None]

NARRATIVE: CASE EVENT DATE: 201403
